FAERS Safety Report 21436720 (Version 3)
Quarter: 2022Q4

REPORT INFORMATION
  Report Type: Report from Study
  Country: MD (occurrence: None)
  Receive Date: 20221010
  Receipt Date: 20221216
  Transmission Date: 20230113
  Serious: Yes (Hospitalization)
  Sender: FDA-Public Use
  Company Number: MD-ROCHE-3194222

PATIENT
  Age: 58 Year
  Sex: Male
  Weight: 100 kg

DRUGS (5)
  1. ATEZOLIZUMAB [Suspect]
     Active Substance: ATEZOLIZUMAB
     Indication: Hepatic cancer
     Dosage: START DATE OF MOST RECENT DOSE OF STUDY DRUG PRIOR TO AE/SAE: 20/SEP/2022, DOSE LAST STUDY DRUG ADMI
     Route: 058
     Dates: start: 20220830
  2. ATEZOLIZUMAB [Suspect]
     Active Substance: ATEZOLIZUMAB
     Indication: Hepatic cancer
     Dosage: START DATE OF MOST RECENT DOSE OF STUDY DRUG PRIOR TO AE/SAE: 20/SEP/2022
     Route: 041
     Dates: start: 20220920
  3. TIRAGOLUMAB [Suspect]
     Active Substance: TIRAGOLUMAB
     Indication: Hepatic cancer
     Dosage: START DATE OF MOST RECENT DOSE OF STUDY DRUG PRIOR TO AE/SAE: 20/SEP/2022
     Route: 042
     Dates: start: 20220920
  4. TIRAGOLUMAB [Suspect]
     Active Substance: TIRAGOLUMAB
     Indication: Hepatic cancer
     Dosage: DOSE LAST STUDY DRUG ADMIN PRIOR AE/SAE: 20/SEP/2022, DOSE LAST STUDY DRUG ADMIN PRIOR AE: 761.65 MG
     Route: 058
     Dates: start: 20220830
  5. AMLODIPINE BESYLATE [Concomitant]
     Active Substance: AMLODIPINE BESYLATE
     Indication: Hypertension
     Route: 048

REACTIONS (1)
  - Pathological fracture [Recovered/Resolved]

NARRATIVE: CASE EVENT DATE: 20220925
